FAERS Safety Report 9985160 (Version 1)
Quarter: 2014Q1

REPORT INFORMATION
  Report Type: Report from Study
  Country: US (occurrence: US)
  Receive Date: 20140307
  Receipt Date: 20140307
  Transmission Date: 20141002
  Serious: No
  Sender: FDA-Public Use
  Company Number: US-ABBVIE-13P-163-1184684-00

PATIENT
  Age: 61 Year
  Sex: Female
  Weight: 81.72 kg

DRUGS (6)
  1. HUMIRA [Suspect]
     Indication: RHEUMATOID ARTHRITIS
     Dates: start: 2010
  2. LYRICA [Concomitant]
     Indication: RHEUMATOID ARTHRITIS
  3. LOTRIL [Concomitant]
     Indication: BLOOD PRESSURE
  4. CELEBREX [Concomitant]
     Indication: RHEUMATOID ARTHRITIS
  5. CYMBALTA [Concomitant]
     Indication: PAIN
  6. ASPIRIN [Concomitant]
     Indication: BLOOD PRESSURE

REACTIONS (4)
  - Cough [Recovering/Resolving]
  - Sinus congestion [Recovering/Resolving]
  - Eye discharge [Recovered/Resolved]
  - Joint swelling [Recovering/Resolving]
